FAERS Safety Report 9987245 (Version 1)
Quarter: 2014Q1

REPORT INFORMATION
  Report Type: Report from Study
  Country: US (occurrence: US)
  Receive Date: 20140307
  Receipt Date: 20140307
  Transmission Date: 20141002
  Serious: No
  Sender: FDA-Public Use
  Company Number: US-ABBVIE-13P-163-1081883-00

PATIENT
  Age: 49 Year
  Sex: Male

DRUGS (10)
  1. HUMIRA [Suspect]
     Indication: CROHN^S DISEASE
  2. PRADAXA [Concomitant]
     Indication: THROMBOSIS
  3. RANTIDINE [Concomitant]
     Indication: ILL-DEFINED DISORDER
  4. VITAMIN E [Concomitant]
     Indication: PRODUCT USED FOR UNKNOWN INDICATION
  5. ASPIRIN [Concomitant]
     Indication: COAGULOPATHY
     Dosage: COATED
  6. AMITRIPTYLINE [Concomitant]
     Indication: INSOMNIA
  7. AMITRIPTYLINE [Concomitant]
     Indication: PAIN
  8. VISTARIL [Concomitant]
     Indication: INSOMNIA
  9. MUCINEX DS [Concomitant]
     Indication: PLEURAL EFFUSION
  10. SPIRIVA [Concomitant]
     Indication: EMPHYSEMA

REACTIONS (3)
  - Haemoglobin increased [Unknown]
  - Rash macular [Recovered/Resolved]
  - Rash macular [Not Recovered/Not Resolved]
